FAERS Safety Report 23433986 (Version 2)
Quarter: 2024Q2

REPORT INFORMATION
  Report Type: Spontaneous
  Country: US (occurrence: US)
  Receive Date: 20240123
  Receipt Date: 20240417
  Transmission Date: 20240716
  Serious: No
  Sender: FDA-Public Use
  Company Number: US-BRIAN CONNER SVP QUALITY AND CHIEF COMPLIANCE OFFICER-2023XER02381

PATIENT
  Sex: Female

DRUGS (1)
  1. GVOKE [Suspect]
     Active Substance: GLUCAGON
     Indication: Hypoglycaemia
     Dosage: INJECTED IN THE ARM

REACTIONS (2)
  - Device delivery system issue [Unknown]
  - Incorrect dose administered [Unknown]

NARRATIVE: CASE EVENT DATE: 20230101
